FAERS Safety Report 5193985-X (Version None)
Quarter: 2006Q4

REPORT INFORMATION
  Report Type: 
  Country: None (occurrence: None)
  Receive Date: 20061228
  Receipt Date: 20060907
  Transmission Date: 20070319
  Serious: No
  Sender: FDA-Public Use
  Company Number: US-GLAXOSMITHKLINE-A0619400A

PATIENT
  Age: 60 Year
  Sex: Female

DRUGS (2)
  1. FLOVENT [Suspect]
     Indication: LARYNGEAL DISORDER
     Route: 055
     Dates: start: 20060701
  2. SYNTHROID [Concomitant]

REACTIONS (2)
  - BLOOD GLUCOSE INCREASED [None]
  - WEIGHT INCREASED [None]
